FAERS Safety Report 15100899 (Version 1)
Quarter: 2018Q3

REPORT INFORMATION
  Report Type: Spontaneous
  Country: DE (occurrence: US)
  Receive Date: 20180703
  Receipt Date: 20180703
  Transmission Date: 20181010
  Serious: No
  Sender: FDA-Public Use
  Company Number: DE-PFIZER INC-2018263655

PATIENT
  Age: 75 Year
  Sex: Female

DRUGS (1)
  1. VENLAFAXINE HCL [Suspect]
     Active Substance: VENLAFAXINE HYDROCHLORIDE
     Indication: DEPRESSION
     Dosage: 37.5 MG, UNK
     Dates: start: 201601

REACTIONS (5)
  - Nightmare [Not Recovered/Not Resolved]
  - Varicose vein [Not Recovered/Not Resolved]
  - Bulimia nervosa [Not Recovered/Not Resolved]
  - Hypertension [Not Recovered/Not Resolved]
  - Paraesthesia [Not Recovered/Not Resolved]

NARRATIVE: CASE EVENT DATE: 2016
